FAERS Safety Report 8078473-5 (Version None)
Quarter: 2012Q1

REPORT INFORMATION
  Report Type: 
  Country: None (occurrence: None)
  Receive Date: 20120127
  Receipt Date: 20110111
  Transmission Date: 20120608
  Serious: No
  Sender: FDA-Public Use
  Company Number: US-ABBOTT-10P-163-0670941-00

PATIENT
  Sex: Female

DRUGS (9)
  1. HUMIRA [Suspect]
  2. ENTOCORT EC [Concomitant]
     Indication: PRODUCT USED FOR UNKNOWN INDICATION
  3. HUMIRA [Suspect]
     Indication: CROHN'S DISEASE
     Dosage: 80MG NEXT DOSE THEN 40MG QOW
     Dates: start: 20100908
  4. PROBIOTICS [Concomitant]
     Indication: PROBIOTIC THERAPY
  5. CALCIUM +D [Concomitant]
     Indication: OSTEOPENIA
  6. VITAMIN TAB [Concomitant]
     Indication: PRODUCT USED FOR UNKNOWN INDICATION
  7. SIMVASTATIN [Concomitant]
     Indication: BLOOD CHOLESTEROL INCREASED
  8. PROTONIX [Concomitant]
     Indication: GASTROOESOPHAGEAL REFLUX DISEASE
     Dosage: DAILY
  9. ATENOLOL [Concomitant]
     Indication: ATRIAL FIBRILLATION

REACTIONS (6)
  - INJECTION SITE HAEMORRHAGE [None]
  - NAUSEA [None]
  - RASH GENERALISED [None]
  - DERMATITIS CONTACT [None]
  - HEADACHE [None]
  - INJECTION SITE HAEMATOMA [None]
